FAERS Safety Report 9068894 (Version 1)
Quarter: 2013Q1

REPORT INFORMATION
  Report Type: Spontaneous
  Country: US (occurrence: None)
  Receive Date: 20130213
  Receipt Date: 20130213
  Transmission Date: 20140127
  Serious: No
  Sender: FDA-Public Use
  Company Number: None

PATIENT
  Age: 75 Year
  Sex: Male

DRUGS (2)
  1. FINASTERIDE [Suspect]
     Indication: PROSTATIC DISORDER
  2. LOSARTAN (SUB:COZAAR) [Suspect]
     Indication: HYPERTENSION

REACTIONS (2)
  - Pruritus [None]
  - Skin lesion [None]
